FAERS Safety Report 23376645 (Version 1)
Quarter: 2024Q1

REPORT INFORMATION
  Report Type: Spontaneous
  Country: US (occurrence: US)
  Receive Date: 20240108
  Receipt Date: 20240108
  Transmission Date: 20240410
  Serious: No
  Sender: FDA-Public Use
  Company Number: US-SA-SAC20240101000488

PATIENT
  Sex: Female
  Weight: 79 kg

DRUGS (1)
  1. DUPIXENT [Suspect]
     Active Substance: DUPILUMAB
     Dosage: 300 MG; EVERY 2 WEEKS
     Route: 058

REACTIONS (2)
  - Eczema [Unknown]
  - Product dose omission issue [Unknown]
